FAERS Safety Report 9877941 (Version 2)
Quarter: 2014Q1

REPORT INFORMATION
  Report Type: Spontaneous
  Country: DE (occurrence: DE)
  Receive Date: 20140206
  Receipt Date: 20140312
  Transmission Date: 20141002
  Serious: Yes (Hospitalization)
  Sender: FDA-Public Use
  Company Number: DE-NOVOPROD-398826

PATIENT
  Age: 24 Year
  Sex: Female
  Weight: 76 kg

DRUGS (5)
  1. LEVEMIR [Suspect]
     Indication: TYPE 1 DIABETES MELLITUS
     Dosage: 16 IU, QD
     Route: 058
     Dates: start: 20131119, end: 20131124
  2. NOVORAPID [Concomitant]
     Indication: TYPE 1 DIABETES MELLITUS
     Dosage: 31 IU, QD
     Route: 058
  3. L-THYROXIN [Concomitant]
     Indication: HYPOTHYROIDISM
     Dosage: 50 UG, QD
     Route: 048
     Dates: start: 20131116
  4. LAMOTRIGIN DURA [Concomitant]
     Indication: IDIOPATHIC GENERALISED EPILEPSY
     Dosage: 25 MG, QD
     Route: 048
     Dates: start: 20131116
  5. VALPROAT [Concomitant]
     Indication: IDIOPATHIC GENERALISED EPILEPSY
     Dosage: 1000 MG, QD
     Route: 048
     Dates: start: 20131116

REACTIONS (3)
  - Angioedema [Recovering/Resolving]
  - Rash maculo-papular [Recovering/Resolving]
  - Pruritus generalised [Recovering/Resolving]
